FAERS Safety Report 4696076-7 (Version None)
Quarter: 2005Q2

REPORT INFORMATION
  Report Type: 
  Country: None (occurrence: None)
  Receive Date: 20050621
  Receipt Date: 20050610
  Transmission Date: 20051028
  Serious: Yes (Hospitalization)
  Sender: FDA-Public Use
  Company Number: FR-ROCHE-407427

PATIENT
  Age: 49 Year
  Sex: Male

DRUGS (5)
  1. CELLCEPT [Suspect]
     Indication: RENAL TRANSPLANT
     Route: 048
     Dates: start: 20050503
  2. SIMULECT [Suspect]
     Indication: RENAL TRANSPLANT
     Dosage: DOSAGE REGIMEN REPORTED AS 20 MG TOTAL. TAKEN AT 8:30PM, STOPPED AT 9:00PM AS NOT TOLERATED
     Route: 042
     Dates: start: 20050503, end: 20050503
  3. SOLU-MEDROL [Suspect]
     Indication: RENAL TRANSPLANT
     Route: 042
     Dates: start: 20050503
  4. POLARAMINE [Suspect]
     Indication: DRUG USE FOR UNKNOWN INDICATION
     Dosage: TAKEN AT 8:30PM
     Route: 042
     Dates: start: 20050503, end: 20050503
  5. ATARAX [Suspect]
     Indication: DRUG USE FOR UNKNOWN INDICATION
     Dosage: DOSAGE REGIMEN REPORTED AS 100 MG TOTAL
     Route: 048
     Dates: start: 20050503, end: 20050503

REACTIONS (1)
  - HAEMOLYTIC URAEMIC SYNDROME [None]
